FAERS Safety Report 9281402 (Version 2)
Quarter: 2013Q2

REPORT INFORMATION
  Report Type: Spontaneous
  Country: JP (occurrence: None)
  Receive Date: 20130502
  Receipt Date: 20130624
  Transmission Date: 20140414
  Serious: Yes (Other)
  Sender: FDA-Public Use
  Company Number: SYM-2013-03124

PATIENT
  Age: 45 Year
  Sex: Male

DRUGS (3)
  1. FLUOROURACIL [Suspect]
     Indication: COLON CANCER STAGE III
  2. OXALIPLATIN (OXALIPLATIN) (OXALIPLATIN) [Suspect]
     Indication: COLON CANCER STAGE III
  3. FOLINIC ACID [Suspect]
     Indication: COLON CANCER STAGE III

REACTIONS (4)
  - Liver injury [None]
  - Periportal sinus dilatation [None]
  - Apoptosis [None]
  - Neutropenia [None]
